FAERS Safety Report 12832823 (Version 3)
Quarter: 2018Q3

REPORT INFORMATION
  Report Type: Report from Study
  Country: None (occurrence: US)
  Receive Date: 20161010
  Receipt Date: 20180901
  Transmission Date: 20181010
  Serious: Yes (Hospitalization)
  Sender: FDA-Public Use
  Company Number: US-ABBVIE-16P-163-1717069-00

PATIENT
  Age: 67 Year
  Sex: Male

DRUGS (4)
  1. PAXIL [Concomitant]
     Active Substance: PAROXETINE HYDROCHLORIDE
     Indication: PRODUCT USED FOR UNKNOWN INDICATION
  2. DUOPA [Suspect]
     Active Substance: CARBIDOPA\LEVODOPA
     Route: 050
     Dates: start: 20160307, end: 201807
  3. MORPHINE [Concomitant]
     Active Substance: MORPHINE
     Indication: PRODUCT USED FOR UNKNOWN INDICATION
  4. DUOPA [Suspect]
     Active Substance: CARBIDOPA\LEVODOPA
     Indication: PARKINSON^S DISEASE
     Route: 050
     Dates: start: 201602, end: 201607

REACTIONS (12)
  - Unintentional medical device removal [Not Recovered/Not Resolved]
  - Intervertebral disc compression [Unknown]
  - Device dislocation [Not Recovered/Not Resolved]
  - Clostridium difficile infection [Unknown]
  - Stoma site haemorrhage [Recovered/Resolved]
  - Psychotic disorder [Unknown]
  - Intervertebral disc compression [Not Recovered/Not Resolved]
  - Bedridden [Not Recovered/Not Resolved]
  - Psychotic disorder [Not Recovered/Not Resolved]
  - Aggression [Unknown]
  - Parkinson^s disease [Not Recovered/Not Resolved]
  - Agitation [Not Recovered/Not Resolved]

NARRATIVE: CASE EVENT DATE: 201606
